FAERS Safety Report 8369166-5 (Version None)
Quarter: 2012Q1

REPORT INFORMATION
  Report Type: 
  Country: None (occurrence: None)
  Receive Date: 20120323
  Receipt Date: 20110823
  Transmission Date: 20120608
  Serious: Yes (Other)
  Sender: FDA-Public Use
  Company Number: 163-21880-11082920

PATIENT
  Age: 63 Year
  Sex: Female
  Weight: 72.5755 kg

DRUGS (8)
  1. ASPIRIN [Concomitant]
  2. REVLIMID [Suspect]
     Indication: MULTIPLE MYELOMA
     Dosage: 10 MG, QD X 21 DAYS, PO
     Route: 048
     Dates: start: 20101122
  3. CYCLOBENZAPRINE [Concomitant]
  4. GABAPENTIN [Concomitant]
  5. PHOSLO [Concomitant]
  6. PROCHLORPERAZINE MALEATE [Concomitant]
  7. NOVOLOG [Concomitant]
  8. LEVOTHYROXINE SODIUM [Concomitant]

REACTIONS (3)
  - WHITE BLOOD CELL COUNT DECREASED [None]
  - DYSPNOEA [None]
  - BLOOD GLUCOSE INCREASED [None]
